FAERS Safety Report 8315596-7 (Version None)
Quarter: 2012Q2

REPORT INFORMATION
  Report Type: 
  Country: None (occurrence: None)
  Receive Date: 20120426
  Receipt Date: 20120418
  Transmission Date: 20120825
  Serious: Yes (Other)
  Sender: FDA-Public Use
  Company Number: FR-ROCHE-1061085

PATIENT
  Sex: Male

DRUGS (11)
  1. MABTHERA [Suspect]
     Indication: PRODUCT USED FOR UNKNOWN INDICATION
  2. SOLU-MEDROL [Suspect]
     Indication: PRODUCT USED FOR UNKNOWN INDICATION
     Dates: start: 20120227
  3. IRBESARTAN [Concomitant]
  4. PREDNISONE TAB [Suspect]
     Indication: PRODUCT USED FOR UNKNOWN INDICATION
     Dates: start: 20120304, end: 20120309
  5. BUMETANIDE [Suspect]
     Indication: PRODUCT USED FOR UNKNOWN INDICATION
     Route: 042
     Dates: start: 20120228, end: 20120306
  6. SOLU-MEDROL [Suspect]
     Dates: start: 20120301, end: 20120303
  7. ROSUVASTATIN [Concomitant]
  8. FLIXOTIDE 250 [Concomitant]
     Dosage: 1 PUFF TWICE DAILY
  9. MYCOPHENOLATE MOFETIL (CELLCEPT) [Suspect]
     Indication: PRODUCT USED FOR UNKNOWN INDICATION
     Dates: start: 20120227
  10. PREDNISONE TAB [Suspect]
     Dates: start: 20120310, end: 20120323
  11. SOLU-MEDROL [Suspect]
     Dates: start: 20120228

REACTIONS (1)
  - DIABETES MELLITUS [None]
